FAERS Safety Report 7460801-2 (Version None)
Quarter: 2011Q2

REPORT INFORMATION
  Report Type: 
  Country: None (occurrence: None)
  Receive Date: 20110505
  Receipt Date: 20110427
  Transmission Date: 20111010
  Serious: Yes (Hospitalization, Other)
  Sender: FDA-Public Use
  Company Number: US-PURDUE-USA-2011-0067327

PATIENT
  Sex: Male

DRUGS (3)
  1. MORPHINE SULFATE [Concomitant]
     Indication: PRODUCT USED FOR UNKNOWN INDICATION
     Dosage: 50 MG, HS
  2. OXYCONTIN (NDA 22-272) [Suspect]
     Indication: RHEUMATOID ARTHRITIS
     Dosage: 80 MG, TID
  3. OXYCODONE HCL [Concomitant]
     Indication: BREAKTHROUGH PAIN

REACTIONS (3)
  - ANKLE FRACTURE [None]
  - PANCREATIC DISORDER [None]
  - NEPHROLITHIASIS [None]
